FAERS Safety Report 21852284 (Version 1)
Quarter: 2023Q1

REPORT INFORMATION
  Report Type: Spontaneous
  Country: US (occurrence: US)
  Receive Date: 20230112
  Receipt Date: 20230112
  Transmission Date: 20230418
  Serious: No
  Sender: FDA-Public Use
  Company Number: US-BRISTOL-MYERS SQUIBB COMPANY-2023-005317

PATIENT
  Age: 61 Year
  Sex: Female

DRUGS (2)
  1. ONUREG [Suspect]
     Active Substance: AZACITIDINE
     Indication: T-cell lymphoma
     Dosage: DOSE : 1 TABLET;     FREQ : DAILY ON DAYS 1-14 OF EACH 35 DAY CYCLE
     Route: 048
  2. ROMIDEPSIN [Concomitant]
     Active Substance: ROMIDEPSIN
     Indication: Product used for unknown indication

REACTIONS (1)
  - Off label use [Unknown]
